FAERS Safety Report 13406936 (Version 3)
Quarter: 2017Q3

REPORT INFORMATION
  Report Type: Report from Study
  Country: GB (occurrence: GB)
  Receive Date: 20170405
  Receipt Date: 20170710
  Transmission Date: 20171127
  Serious: Yes (Other)
  Sender: FDA-Public Use
  Company Number: GB-JNJFOC-20170329768

PATIENT
  Age: 51 Year
  Sex: Male

DRUGS (1)
  1. STELARA [Suspect]
     Active Substance: USTEKINUMAB
     Indication: PSORIASIS
     Route: 058
     Dates: start: 20131129

REACTIONS (7)
  - Malaise [Unknown]
  - Limb injury [Recovered/Resolved]
  - Wound infection [Unknown]
  - Product storage error [Unknown]
  - Lower respiratory tract infection [Unknown]
  - Laceration [Unknown]
  - Limb injury [Unknown]

NARRATIVE: CASE EVENT DATE: 201703
